FAERS Safety Report 14190343 (Version 3)
Quarter: 2018Q1

REPORT INFORMATION
  Report Type: Spontaneous
  Country: GB (occurrence: GB)
  Receive Date: 20171115
  Receipt Date: 20180124
  Transmission Date: 20180508
  Serious: Yes (Hospitalization, Other)
  Sender: FDA-Public Use
  Company Number: GB-IPSEN BIOPHARMACEUTICALS, INC.-2017-14444

PATIENT
  Sex: Male

DRUGS (1)
  1. LANREOTIDE AUTOGEL [Suspect]
     Active Substance: LANREOTIDE
     Indication: NEUROENDOCRINE TUMOUR
     Dosage: 120 MG
     Route: 058
     Dates: start: 201601

REACTIONS (9)
  - Sepsis [Unknown]
  - Metastases to peritoneum [Unknown]
  - Gastrointestinal stoma complication [Unknown]
  - Gastrointestinal obstruction [Recovered/Resolved]
  - Carcinoid heart disease [Unknown]
  - Disease progression [Unknown]
  - Fibrosis [Unknown]
  - Abdominal pain [Recovered/Resolved with Sequelae]
  - Metastases to lymph nodes [Unknown]

NARRATIVE: CASE EVENT DATE: 2016
